FAERS Safety Report 5805434-6 (Version None)
Quarter: 2008Q3

REPORT INFORMATION
  Report Type: 
  Country: None (occurrence: None)
  Receive Date: 20080708
  Receipt Date: 20080627
  Transmission Date: 20090109
  Serious: Yes (Other)
  Sender: FDA-Public Use
  Company Number: CHPA2008US10660

PATIENT
  Age: 40 Year
  Sex: Male

DRUGS (1)
  1. EXCEDRIN PM (NCH)(ACETAMINOPHEN (PARACETAMOL), DIPHENHYDRAMINE HYDROCH [Suspect]

REACTIONS (2)
  - DRUG DEPENDENCE [None]
  - INSOMNIA [None]
